FAERS Safety Report 7766094-0 (Version None)
Quarter: 2011Q3

REPORT INFORMATION
  Report Type: 
  Country: None (occurrence: None)
  Receive Date: 20110921
  Receipt Date: 20110912
  Transmission Date: 20111222
  Serious: Yes (Other)
  Sender: FDA-Public Use
  Company Number: US-ASTRAZENECA-2011SE54559

PATIENT
  Age: 78 Year
  Sex: Female
  Weight: 57.2 kg

DRUGS (1)
  1. CRESTOR [Suspect]
     Route: 048
     Dates: start: 20080101

REACTIONS (1)
  - SQUAMOUS CELL CARCINOMA [None]
